FAERS Safety Report 5461566-6 (Version None)
Quarter: 2007Q3

REPORT INFORMATION
  Report Type: 
  Country: None (occurrence: None)
  Receive Date: 20070920
  Receipt Date: 20070917
  Transmission Date: 20080115
  Serious: Yes (Hospitalization)
  Sender: FDA-Public Use
  Company Number: HQWYE187417SEP07

PATIENT
  Sex: Male

DRUGS (14)
  1. CORDARONE [Suspect]
     Indication: ISCHAEMIC CARDIOMYOPATHY
     Dosage: 200 MG TABLET, DOSE AND FREQUENCY NOT SPECIFIED
     Route: 048
     Dates: end: 20070101
  2. CORDARONE [Interacting]
     Route: 048
     Dates: start: 20070701
  3. DIGOXIN [Concomitant]
     Dosage: DOSE AND FREQUENCY NOT SPECIFIED
     Route: 065
  4. PERINDOPRIL ERBUMINE [Concomitant]
     Dosage: DOSE AND FREQUENCY NOT SPECIFIED
     Route: 065
     Dates: end: 20070101
  5. PERINDOPRIL ERBUMINE [Concomitant]
     Route: 048
     Dates: start: 20070701
  6. TAHOR [Concomitant]
     Indication: DYSLIPIDAEMIA
     Route: 048
     Dates: end: 20070101
  7. TAHOR [Concomitant]
     Route: 048
     Dates: start: 20070701
  8. NOVOMIX [Concomitant]
     Indication: DIABETES MELLITUS
     Route: 058
     Dates: start: 20070301
  9. PREVISCAN [Concomitant]
     Indication: ATRIAL FIBRILLATION
     Dosage: .5 UNIT EVERY 1 DAY
     Route: 048
     Dates: end: 20070101
  10. PREVISCAN [Concomitant]
     Route: 048
     Dates: start: 20070701
  11. BISOPROLOL [Interacting]
     Indication: ISCHAEMIC CARDIOMYOPATHY
     Dosage: 10 MG TABLET, ONCE A DAY
     Route: 048
     Dates: end: 20070101
  12. BISOPROLOL [Interacting]
     Dosage: 10 MG TABLET, ONCE A DAY
     Route: 048
     Dates: start: 20070701
  13. LASIX [Concomitant]
     Indication: ISCHAEMIC CARDIOMYOPATHY
     Route: 048
     Dates: end: 20070101
  14. LASIX [Concomitant]
     Dosage: DOSE AND FREQUENCY NOT SPECIFIED
     Route: 065
     Dates: start: 20070701

REACTIONS (6)
  - ASTHENIA [None]
  - ATRIOVENTRICULAR BLOCK [None]
  - BRADYCARDIA [None]
  - DRUG INTERACTION [None]
  - HYPOTHYROIDISM [None]
  - NAUSEA [None]
